FAERS Safety Report 24118038 (Version 2)
Quarter: 2024Q3

REPORT INFORMATION
  Report Type: Report from Study
  Country: JP (occurrence: JP)
  Receive Date: 20240722
  Receipt Date: 20240801
  Transmission Date: 20241017
  Serious: Yes (Hospitalization, Other)
  Sender: GLAXOSMITHKLINE
  Company Number: JP-GSK-JP2023JPN103752

PATIENT

DRUGS (35)
  1. MEPOLIZUMAB [Suspect]
     Active Substance: MEPOLIZUMAB
     Indication: Eosinophilic granulomatosis with polyangiitis
     Dosage: 100 MG
     Dates: start: 20220725, end: 20220725
  2. MEPOLIZUMAB [Suspect]
     Active Substance: MEPOLIZUMAB
     Dosage: 300 MG
     Dates: start: 20220913, end: 20220913
  3. MEPOLIZUMAB [Suspect]
     Active Substance: MEPOLIZUMAB
     Dosage: 300 MG
     Dates: start: 20221020, end: 20221020
  4. MEPOLIZUMAB [Suspect]
     Active Substance: MEPOLIZUMAB
     Dosage: 300 MG, Q4W
     Dates: start: 20221117, end: 20230309
  5. MEPOLIZUMAB [Suspect]
     Active Substance: MEPOLIZUMAB
     Dosage: 300 MG
     Dates: start: 20230525, end: 20230525
  6. MEPOLIZUMAB [Suspect]
     Active Substance: MEPOLIZUMAB
     Dosage: 300 MG, Q9W
     Dates: start: 20230727, end: 20230727
  7. PREDONINE [Concomitant]
     Active Substance: PREDNISOLONE
     Indication: Eosinophilic granulomatosis with polyangiitis
     Dosage: 30 MG, QD
     Route: 048
     Dates: end: 20220728
  8. PREDONINE [Concomitant]
     Active Substance: PREDNISOLONE
     Indication: Mononeuropathy multiplex
     Dosage: 27.5 MG, QD
     Route: 048
     Dates: start: 20220729, end: 20220808
  9. PREDONINE [Concomitant]
     Active Substance: PREDNISOLONE
     Indication: Condition aggravated
     Dosage: 25 MG, QD
     Route: 048
     Dates: start: 20220809, end: 20220901
  10. PREDONINE [Concomitant]
     Active Substance: PREDNISOLONE
     Dosage: 20 MG, QD
     Route: 048
     Dates: start: 20220902, end: 20220908
  11. PREDONINE [Concomitant]
     Active Substance: PREDNISOLONE
     Dosage: 15 MG, QD
     Route: 048
     Dates: start: 20220909, end: 20220913
  12. PREDONINE [Concomitant]
     Active Substance: PREDNISOLONE
     Dosage: 40 MG, QD
     Route: 048
     Dates: start: 20220925, end: 20221005
  13. PREDONINE [Concomitant]
     Active Substance: PREDNISOLONE
     Dosage: 30 MG, QD
     Route: 048
     Dates: start: 20221006, end: 20221012
  14. PREDONINE [Concomitant]
     Active Substance: PREDNISOLONE
     Dosage: 25 MG, QD
     Route: 048
     Dates: start: 20221013, end: 20221020
  15. PREDONINE [Concomitant]
     Active Substance: PREDNISOLONE
     Dosage: 20 MG, QD
     Route: 048
     Dates: start: 20221021, end: 20221103
  16. PREDONINE [Concomitant]
     Active Substance: PREDNISOLONE
     Dosage: 15 MG, QD
     Route: 048
     Dates: start: 20221104, end: 20221117
  17. PREDONINE [Concomitant]
     Active Substance: PREDNISOLONE
     Dosage: 12.5 MG, QD
     Route: 048
     Dates: start: 20221118, end: 20221201
  18. PREDONINE [Concomitant]
     Active Substance: PREDNISOLONE
     Dosage: 10 MG, QD
     Route: 048
     Dates: start: 20221202, end: 20221215
  19. PREDONINE [Concomitant]
     Active Substance: PREDNISOLONE
     Dosage: 9 MG, QD
     Route: 048
     Dates: start: 20221216, end: 20221229
  20. PREDONINE [Concomitant]
     Active Substance: PREDNISOLONE
     Dosage: 8 MG, QD
     Route: 048
     Dates: start: 20221230, end: 20230112
  21. PREDONINE [Concomitant]
     Active Substance: PREDNISOLONE
     Dosage: 7 MG, QD
     Route: 048
     Dates: start: 20230113, end: 20230209
  22. PREDONINE [Concomitant]
     Active Substance: PREDNISOLONE
     Dosage: 6 MG, QD
     Route: 048
     Dates: start: 20230210, end: 20230525
  23. PREDONINE [Concomitant]
     Active Substance: PREDNISOLONE
     Dosage: 5 MG, QD
     Route: 048
     Dates: start: 20230526
  24. MEDROL [Concomitant]
     Active Substance: METHYLPREDNISOLONE
     Indication: Eosinophilic granulomatosis with polyangiitis
     Dosage: 16 MG, QD
     Route: 048
     Dates: start: 20220914, end: 20220924
  25. MEDROL [Concomitant]
     Active Substance: METHYLPREDNISOLONE
     Indication: Mononeuropathy multiplex
  26. MEDROL [Concomitant]
     Active Substance: METHYLPREDNISOLONE
     Indication: Condition aggravated
  27. SYMBICORT [Concomitant]
     Active Substance: BUDESONIDE\FORMOTEROL FUMARATE DIHYDRATE
     Indication: Eosinophilic granulomatosis with polyangiitis
     Dosage: 240 ?G, QD
     Route: 055
  28. SOLU-MEDROL [Concomitant]
     Active Substance: METHYLPREDNISOLONE SODIUM SUCCINATE
     Indication: Eosinophilic granulomatosis with polyangiitis
     Dosage: 500 MG, QD
     Route: 042
     Dates: start: 20220629, end: 20220701
  29. CYCLOPHOSPHAMIDE [Concomitant]
     Active Substance: CYCLOPHOSPHAMIDE
     Indication: Eosinophilic granulomatosis with polyangiitis
     Dosage: 630 MG, QD
     Dates: start: 20220707, end: 20220913
  30. RITUXAN [Concomitant]
     Active Substance: RITUXIMAB
     Indication: Eosinophilic granulomatosis with polyangiitis
     Dosage: 480 MG, QD
     Dates: start: 20220928, end: 20221012
  31. RITUXAN [Concomitant]
     Active Substance: RITUXIMAB
     Indication: Mononeuropathy multiplex
  32. RITUXAN [Concomitant]
     Active Substance: RITUXIMAB
     Indication: Condition aggravated
  33. AZATHIOPRINE [Concomitant]
     Active Substance: AZATHIOPRINE
     Indication: Eosinophilic granulomatosis with polyangiitis
     Dosage: 25 MG, QD
     Dates: start: 20230112, end: 20230308
  34. PREGABALIN [Concomitant]
     Active Substance: PREGABALIN
     Dosage: UNK
  35. BONALON [Concomitant]
     Active Substance: ALENDRONATE SODIUM
     Indication: Osteoporosis prophylaxis
     Dosage: UNK

REACTIONS (8)
  - Eosinophilic granulomatosis with polyangiitis [Recovering/Resolving]
  - Condition aggravated [Recovering/Resolving]
  - Mononeuropathy multiplex [Recovering/Resolving]
  - Condition aggravated [Recovering/Resolving]
  - Prescribed underdose [Unknown]
  - Inappropriate schedule of product administration [Unknown]
  - Off label use [Unknown]
  - Drug ineffective [Unknown]

NARRATIVE: CASE EVENT DATE: 20220922
